FAERS Safety Report 15422259 (Version 1)
Quarter: 2018Q3

REPORT INFORMATION
  Report Type: Spontaneous
  Country: FR (occurrence: FR)
  Receive Date: 20180924
  Receipt Date: 20180924
  Transmission Date: 20181010
  Serious: Yes (Hospitalization, Other)
  Sender: FDA-Public Use
  Company Number: FR-BIOVITRUM-2018BV000646

PATIENT
  Age: 59 Year
  Sex: Male

DRUGS (5)
  1. ALPROLIX [Suspect]
     Active Substance: EFTRENONACOG ALFA
     Indication: SURGERY
     Dosage: DURING SURGERY
     Route: 065
  2. ALPROLIX [Suspect]
     Active Substance: EFTRENONACOG ALFA
     Dosage: FROM 48 HOURS
     Route: 065
  3. ALPROLIX [Suspect]
     Active Substance: EFTRENONACOG ALFA
     Dosage: AT 6 HOURS, 12 HOURS, AND 36 HOURS AFTER DIALYSIS
     Route: 065
  4. ALPROLIX [Suspect]
     Active Substance: EFTRENONACOG ALFA
     Dosage: FROM DAY 5
     Route: 065
  5. ALPROLIX [Suspect]
     Active Substance: EFTRENONACOG ALFA
     Indication: FACTOR IX DEFICIENCY
     Route: 065

REACTIONS (10)
  - Pubis fracture [Recovering/Resolving]
  - Haematoma [Recovering/Resolving]
  - Fracture [Recovering/Resolving]
  - Globulins decreased [Recovering/Resolving]
  - Fall [Recovering/Resolving]
  - Prosthesis implantation [Recovered/Resolved]
  - Haemarthrosis [Recovering/Resolving]
  - Wound haemorrhage [Recovering/Resolving]
  - Fracture nonunion [Recovering/Resolving]
  - Disseminated intravascular coagulation [Recovering/Resolving]
